FAERS Safety Report 7271608-3 (Version None)
Quarter: 2011Q1

REPORT INFORMATION
  Report Type: 
  Country: None (occurrence: None)
  Receive Date: 20110125
  Receipt Date: 20110125
  Transmission Date: 20110831
  Serious: Yes (Hospitalization)
  Sender: FDA-Public Use
  Company Number: None

PATIENT
  Sex: Male

DRUGS (4)
  1. LEFLUNOMIDE [Suspect]
     Indication: FATIGUE
  2. LEFLUNOMIDE [Suspect]
     Indication: DIARRHOEA
  3. LEFLUNOMIDE [Suspect]
     Indication: NAUSEA
  4. LEFLUNOMIDE [Suspect]
     Indication: VOMITING

REACTIONS (9)
  - WEIGHT DECREASED [None]
  - DECREASED APPETITE [None]
  - DEHYDRATION [None]
  - ALCOHOL USE [None]
  - DIARRHOEA [None]
  - TOXICITY TO VARIOUS AGENTS [None]
  - FATIGUE [None]
  - VOMITING [None]
  - NAUSEA [None]
